FAERS Safety Report 24170685 (Version 1)
Quarter: 2024Q3

REPORT INFORMATION
  Report Type: Spontaneous
  Country: US (occurrence: None)
  Receive Date: 20240802
  Receipt Date: 20240802
  Transmission Date: 20241017
  Serious: Yes (Life-Threatening)
  Sender: Public
  Company Number: None

PATIENT
  Age: 43 Year
  Sex: Female
  Weight: 108 kg

DRUGS (1)
  1. RITUXAN [Suspect]
     Active Substance: RITUXIMAB
     Indication: Neuromyelitis optica spectrum disorder
     Dosage: 1000 MG Q 6MONTHS INTRAVENOUS DRIP
     Route: 041
     Dates: start: 20240802, end: 20240802

REACTIONS (4)
  - Infusion related reaction [None]
  - Chest discomfort [None]
  - Pharyngeal swelling [None]
  - Swelling face [None]

NARRATIVE: CASE EVENT DATE: 20240802
